FAERS Safety Report 14022341 (Version 1)
Quarter: 2017Q3

REPORT INFORMATION
  Report Type: Spontaneous
  Country: US (occurrence: None)
  Receive Date: 20170929
  Receipt Date: 20170929
  Transmission Date: 20171128
  Serious: Yes (Death, Life-Threatening, Hospitalization, Disabling, Other)
  Sender: FDA-Public Use
  Company Number: None

PATIENT
  Sex: Female

DRUGS (1)
  1. NEXAVAR [Suspect]
     Active Substance: SORAFENIB
     Indication: HEPATIC CANCER
     Route: 048
     Dates: start: 20170825

REACTIONS (6)
  - Multiple organ dysfunction syndrome [None]
  - Blood creatine phosphokinase increased [None]
  - Blood sodium decreased [None]
  - Ammonia increased [None]
  - Lung cancer metastatic [None]
  - Blood potassium decreased [None]
